FAERS Safety Report 10144299 (Version 1)
Quarter: 2014Q2

REPORT INFORMATION
  Report Type: Report from Study
  Country: NL (occurrence: NL)
  Receive Date: 20140430
  Receipt Date: 20140430
  Transmission Date: 20141212
  Serious: Yes (Hospitalization, Other)
  Sender: FDA-Public Use
  Company Number: NL-BAYER-2014-054631

PATIENT
  Age: 68 Year
  Sex: Female

DRUGS (10)
  1. VENTAVIS [Suspect]
     Indication: PULMONARY ARTERIAL HYPERTENSION
     Dosage: 5 ?G, 6 AMPOULES PER DAY
     Route: 055
     Dates: start: 200912
  2. VENTAVIS [Suspect]
     Indication: PULMONARY ARTERIAL HYPERTENSION
     Dosage: NEBULISATION 4 TIMES A DAY
     Dates: start: 20120910, end: 20120915
  3. VENTAVIS [Suspect]
     Indication: PULMONARY ARTERIAL HYPERTENSION
     Dosage: UNK
  4. NAPROXEN SODIUM ({= 220 MG) [Suspect]
     Indication: BURSITIS
  5. ENALAPRIL [Concomitant]
     Dosage: 20 2X1
  6. SPIRONOLACTON [Concomitant]
     Dosage: 12 MG, QD
  7. FUROSEMIDE [Concomitant]
     Dosage: 20 MG, QD
  8. CRESTOR [Concomitant]
     Dosage: 40 MG, QD
  9. MARCOUMAR [Concomitant]
  10. ALLOPURINOL [Concomitant]
     Dosage: 100 MG, QD

REACTIONS (15)
  - Syncope [Recovered/Resolved]
  - Diarrhoea [Recovered/Resolved]
  - Hypotension [Recovered/Resolved]
  - Dehydration [Recovered/Resolved]
  - Respiratory rate decreased [Recovered/Resolved]
  - Renal impairment [Recovered/Resolved]
  - Bursitis [Recovering/Resolving]
  - Arthralgia [Recovering/Resolving]
  - Respiratory rate increased [None]
  - Exercise tolerance decreased [None]
  - Abdominal pain upper [None]
  - Wrong technique in drug usage process [None]
  - Fluid retention [Recovered/Resolved]
  - Nasopharyngitis [Not Recovered/Not Resolved]
  - General physical health deterioration [Not Recovered/Not Resolved]
